FAERS Safety Report 14781157 (Version 2)
Quarter: 2018Q2

REPORT INFORMATION
  Report Type: Spontaneous
  Country: GR (occurrence: GR)
  Receive Date: 20180419
  Receipt Date: 20180528
  Transmission Date: 20180711
  Serious: Yes (Death)
  Sender: FDA-Public Use
  Company Number: GR-ABBVIE-18P-066-2327362-00

PATIENT
  Age: 73 Year
  Sex: Female

DRUGS (1)
  1. VENCLYXTO [Suspect]
     Active Substance: VENETOCLAX
     Indication: CHRONIC LYMPHOCYTIC LEUKAEMIA
     Route: 048
     Dates: start: 20171113

REACTIONS (3)
  - Chronic lymphocytic leukaemia [Fatal]
  - Blood lactate dehydrogenase abnormal [Not Recovered/Not Resolved]
  - Richter^s syndrome [Fatal]

NARRATIVE: CASE EVENT DATE: 201804
